FAERS Safety Report 25336874 (Version 2)
Quarter: 2025Q2

REPORT INFORMATION
  Report Type: Spontaneous
  Country: IN (occurrence: IN)
  Receive Date: 20250520
  Receipt Date: 20250527
  Transmission Date: 20250716
  Serious: Yes (Hospitalization, Disabling, Other)
  Sender: PFIZER
  Company Number: IN-PFIZER INC-PV202500059442

PATIENT
  Age: 53 Year
  Sex: Female

DRUGS (3)
  1. DEPO-MEDROL [Suspect]
     Active Substance: METHYLPREDNISOLONE ACETATE
     Indication: Arthralgia
     Route: 014
  2. CEFUROXIME [Concomitant]
     Active Substance: CEFUROXIME
     Indication: Evidence based treatment
     Dosage: 1.5 MG, 2X/DAY (ON DAY 12)
  3. AMIKACIN [Concomitant]
     Active Substance: AMIKACIN
     Indication: Evidence based treatment
     Dosage: 500 MG, 2X/DAY (ON DAY 12)

REACTIONS (4)
  - Arthritis fungal [Recovered/Resolved]
  - Arthritis [Recovered/Resolved]
  - Candida infection [Recovered/Resolved]
  - Device related infection [Recovered/Resolved]
